FAERS Safety Report 5490512-4 (Version None)
Quarter: 2007Q4

REPORT INFORMATION
  Report Type: 
  Country: None (occurrence: None)
  Receive Date: 20071017
  Receipt Date: 20071017
  Transmission Date: 20080405
  Serious: Yes (Hospitalization)
  Sender: FDA-Public Use
  Company Number: None

PATIENT
  Age: 46 Year
  Sex: Female
  Weight: 85 kg

DRUGS (1)
  1. MEPERIDINE HCL [Suspect]
     Indication: SICKLE CELL ANAEMIA WITH CRISIS
     Dosage: 100 MG Q 2 H PRN

REACTIONS (2)
  - CONVULSION [None]
  - SICKLE CELL ANAEMIA WITH CRISIS [None]
